FAERS Safety Report 4724033-0 (Version None)
Quarter: 2005Q3

REPORT INFORMATION
  Report Type: 
  Country: None (occurrence: None)
  Receive Date: 20050721
  Receipt Date: 20050630
  Transmission Date: 20060218
  Serious: Yes (Hospitalization)
  Sender: FDA-Public Use
  Company Number: GBS050517324

PATIENT
  Age: 55 Year
  Sex: Male

DRUGS (1)
  1. CYMBALTA [Suspect]
     Dosage: 60 MG

REACTIONS (6)
  - BLOOD PRESSURE INCREASED [None]
  - CONTUSION [None]
  - DRUG LEVEL CHANGED [None]
  - HEPATIC FUNCTION ABNORMAL [None]
  - RASH [None]
  - ULTRASOUND SCAN ABNORMAL [None]
